FAERS Safety Report 6291924-1 (Version None)
Quarter: 2009Q3

REPORT INFORMATION
  Report Type: 
  Country: None (occurrence: None)
  Receive Date: 20090729
  Receipt Date: 20090720
  Transmission Date: 20100115
  Serious: Yes (Hospitalization, Other)
  Sender: FDA-Public Use
  Company Number: 2009SP014422

PATIENT
  Age: 55 Year
  Sex: Female
  Weight: 74.8435 kg

DRUGS (11)
  1. PEG-INTRON [Suspect]
     Indication: HEPATITIS C
     Dosage: SC
     Route: 058
     Dates: start: 20090515, end: 20090612
  2. RIBAVIRIN [Suspect]
     Indication: HEPATITIS C
     Dosage: PO
     Route: 048
     Dates: start: 20090515, end: 20090612
  3. INTRON A [Suspect]
     Indication: DRUG USE FOR UNKNOWN INDICATION
  4. CARDIZEM [Concomitant]
  5. ESTRADIOL [Concomitant]
  6. NASACORT AQ [Concomitant]
  7. AMBIEN [Concomitant]
  8. MAXZIDE [Concomitant]
  9. SYMBICORT [Concomitant]
  10. XOPONEX [Concomitant]
  11. XYZAL [Concomitant]

REACTIONS (19)
  - ALTERED STATE OF CONSCIOUSNESS [None]
  - ANGINA PECTORIS [None]
  - BLOOD PRESSURE SYSTOLIC INCREASED [None]
  - COMMUNICATION DISORDER [None]
  - CONFUSIONAL STATE [None]
  - DRUG HYPERSENSITIVITY [None]
  - DYSKINESIA [None]
  - DYSPNOEA [None]
  - HYPOKALAEMIA [None]
  - HYPONATRAEMIA [None]
  - INCOHERENT [None]
  - LUNG HYPERINFLATION [None]
  - MALAISE [None]
  - MUSCLE SPASMS [None]
  - POLYDIPSIA PSYCHOGENIC [None]
  - THIRST [None]
  - TREMOR [None]
  - WATER INTOXICATION [None]
  - WHITE BLOOD CELL COUNT DECREASED [None]
